FAERS Safety Report 5191411-8 (Version None)
Quarter: 2006Q4

REPORT INFORMATION
  Report Type: 
  Country: None (occurrence: None)
  Receive Date: 20061226
  Receipt Date: 20061215
  Transmission Date: 20070319
  Serious: Yes (Hospitalization)
  Sender: FDA-Public Use
  Company Number: PT-ROCHE-475409

PATIENT
  Age: 46 Year
  Sex: Female

DRUGS (2)
  1. INTERFERON ALFA [Suspect]
     Route: 065
  2. RIBAVIRIN [Suspect]
     Route: 065

REACTIONS (7)
  - ASTHENIA [None]
  - CSF PROTEIN INCREASED [None]
  - DEMYELINATING POLYNEUROPATHY [None]
  - FACIAL PARESIS [None]
  - HEPATIC ENZYME INCREASED [None]
  - HYPOREFLEXIA [None]
  - PERONEAL NERVE PALSY [None]
